FAERS Safety Report 9238688 (Version 1)
Quarter: 2013Q1

REPORT INFORMATION
  Report Type: Spontaneous
  Country: US (occurrence: None)
  Receive Date: 20121106
  Receipt Date: 20121106
  Transmission Date: 20140127
  Serious: No
  Sender: FDA-Public Use
  Company Number: 1000038283

PATIENT
  Age: 77 Year
  Sex: Female

DRUGS (9)
  1. DALIRESP (ROFLUMILAST) (500 MICROGRAM, TABLETS) [Suspect]
     Indication: CHRONIC OBSTRUCTIVE PULMONARY DISEASE
     Route: 048
     Dates: start: 20120826, end: 20120901
  2. ALBUTEROL (ALBUTEROL) (ALBUTEROL) [Concomitant]
  3. BUDESONIDE (BUDESONIDE) (BUDESONIDE) [Concomitant]
  4. ATORVASTATIN (ATORVASTATIN) (ATORVASTATIN) [Concomitant]
  5. ALMODIPINE (AMLODIPINE) (ALMODIPINE) [Concomitant]
  6. CALCIUM (CALCIUM) (CALCIUM) [Concomitant]
  7. POTASSIUM (POTASSIUM) (POTASSIUM) [Concomitant]
  8. LEVOTHYROXINE (LEVOTHYROXINE SODIUM) (LEVOTHYROXINE SODIUM) [Concomitant]
  9. FUROSEMIDE [Concomitant]

REACTIONS (8)
  - Influenza like illness [None]
  - Decreased appetite [None]
  - Headache [None]
  - Nausea [None]
  - Diarrhoea [None]
  - Weight decreased [None]
  - Back pain [None]
  - Dizziness [None]
